FAERS Safety Report 7456972-4 (Version None)
Quarter: 2011Q2

REPORT INFORMATION
  Report Type: 
  Country: None (occurrence: None)
  Receive Date: 20110504
  Receipt Date: 20100928
  Transmission Date: 20111010
  Serious: Yes (Hospitalization, Other)
  Sender: FDA-Public Use
  Company Number: US-BAYER-201010697NA

PATIENT
  Age: 26 Year
  Sex: Female
  Weight: 52.154 kg

DRUGS (14)
  1. PROVENTIL [Concomitant]
  2. CIPROFLOXACIN [Concomitant]
  3. SULFAMETHOXAZOLE [Concomitant]
  4. UROCIT-K [Concomitant]
  5. IBUPROFEN [Concomitant]
  6. YASMIN [Suspect]
     Indication: CONTRACEPTION
     Dosage: 1 DF (DAILY DOSE), QD, ORAL
     Route: 048
     Dates: start: 20070201, end: 20070515
  7. HYOSCYAMINE [Concomitant]
     Dosage: 0.15 MG, UNK
     Route: 060
  8. YAZ [Suspect]
     Indication: CONTRACEPTION
     Dosage: 1 DF (DAILY DOSE), QD, ORAL
     Route: 048
     Dates: start: 20070201, end: 20070515
  9. DICYCLOMINE [Concomitant]
     Dosage: 20 MG, UNK
  10. PHENAZOPYRIDINE HCL TAB [Concomitant]
  11. FLUTICASONE PROPIONATE [Concomitant]
  12. DETROL [Concomitant]
  13. PROTONIX [Concomitant]
     Dosage: 40 MG, CONT
  14. HYDROCODONE BITARTRATE [Concomitant]

REACTIONS (9)
  - VOMITING [None]
  - NAUSEA [None]
  - CHEST PAIN [None]
  - DYSPEPSIA [None]
  - GALLBLADDER DISORDER [None]
  - GASTROOESOPHAGEAL REFLUX DISEASE [None]
  - CHOLECYSTITIS ACUTE [None]
  - ABDOMINAL PAIN [None]
  - PROCEDURAL PAIN [None]
